FAERS Safety Report 15962791 (Version 3)
Quarter: 2019Q1

REPORT INFORMATION
  Report Type: Report from Study
  Country: GB (occurrence: GB)
  Receive Date: 20190214
  Receipt Date: 20190312
  Transmission Date: 20190417
  Serious: Yes (Other)
  Sender: FDA-Public Use
  Company Number: PHHY2019GB025374

PATIENT
  Sex: Female

DRUGS (1)
  1. ERELZI [Suspect]
     Active Substance: ETANERCEPT-SZZS
     Indication: RHEUMATOID ARTHRITIS
     Dosage: 50 MG, QW,PREFILLED PEN
     Route: 058
     Dates: start: 20190124

REACTIONS (9)
  - Headache [Unknown]
  - Nausea [Unknown]
  - Ill-defined disorder [Unknown]
  - Injection site erythema [Recovered/Resolved]
  - Injection site bruising [Unknown]
  - Injection site pain [Unknown]
  - Fear of injection [Unknown]
  - Injection site swelling [Recovered/Resolved]
  - Injection site swelling [Unknown]
